FAERS Safety Report 15772661 (Version 2)
Quarter: 2019Q1

REPORT INFORMATION
  Report Type: Spontaneous
  Country: US (occurrence: US)
  Receive Date: 20181228
  Receipt Date: 20190313
  Transmission Date: 20190417
  Serious: Yes (Other)
  Sender: FDA-Public Use
  Company Number: US-SA-2018SA395525

PATIENT
  Age: 53 Year
  Sex: Female

DRUGS (14)
  1. PROCHLORPERAZINE. [Concomitant]
     Active Substance: PROCHLORPERAZINE
     Dosage: 1 DF, EVERY 6 HOURS IF NEEDED
     Dates: start: 20151020
  2. PARAPLATIN [Concomitant]
     Active Substance: CARBOPLATIN
     Dosage: 775 MG, UNK
  3. PROCHLORPERAZINE. [Concomitant]
     Active Substance: PROCHLORPERAZINE
     Dosage: 1 DF, EVERY 6 HOURS IF NEEDED
     Dates: start: 20151021
  4. TAXOTERE [Suspect]
     Active Substance: DOCETAXEL
     Indication: BREAST CANCER FEMALE
     Dosage: 156 MG, QW
     Route: 042
     Dates: start: 20151019, end: 20151019
  5. NEUPOGEN [Concomitant]
     Active Substance: FILGRASTIM
     Dosage: 480 UG, UNK
     Route: 058
     Dates: start: 20151026
  6. ONDANSETRON [Concomitant]
     Active Substance: ONDANSETRON
     Dosage: 1 DF, EVERY 8 HOURS AS NEEDED
     Dates: start: 20151023
  7. TAXOTERE [Suspect]
     Active Substance: DOCETAXEL
     Dosage: 156 MG, QW
     Route: 042
     Dates: start: 20160111, end: 20160111
  8. HERCEPTIN [Concomitant]
     Active Substance: TRASTUZUMAB
     Dosage: 4 MG/KG=377 MG
  9. ONDANSETRON [Concomitant]
     Active Substance: ONDANSETRON
     Dosage: 1 DF, 8 HOURS AS NEEDED
     Dates: start: 20151022
  10. PROCHLORPERAZINE. [Concomitant]
     Active Substance: PROCHLORPERAZINE
     Indication: NAUSEA
     Dosage: 1.0 DF, EVERY 6 H OURS IF NEEDED
     Dates: start: 20151019
  11. PROCHLORPERAZINE. [Concomitant]
     Active Substance: PROCHLORPERAZINE
     Dosage: 1 DF, EVERY 6 HOURS IF NEEDED
     Dates: start: 20151023
  12. HERCEPTIN [Concomitant]
     Active Substance: TRASTUZUMAB
     Dosage: 2 MG/KG=100 MG
     Route: 042
  13. ALOXI [Concomitant]
     Active Substance: PALONOSETRON HYDROCHLORIDE
     Indication: NAUSEA
     Dosage: 0.25 MG, UNK
     Route: 042
  14. PROCHLORPERAZINE. [Concomitant]
     Active Substance: PROCHLORPERAZINE
     Dosage: 1 DF, EVERY 6 HOURS IF NEEDED
     Dates: start: 20151022

REACTIONS (1)
  - Alopecia [Recovering/Resolving]

NARRATIVE: CASE EVENT DATE: 201510
